FAERS Safety Report 11974230 (Version 1)
Quarter: 2016Q1

REPORT INFORMATION
  Report Type: Report from Study
  Country: US (occurrence: US)
  Receive Date: 20160128
  Receipt Date: 20160128
  Transmission Date: 20160526
  Serious: No
  Sender: FDA-Public Use
  Company Number: US-ABBVIE-15K-163-1402816-00

PATIENT
  Age: 34 Year
  Sex: Female

DRUGS (1)
  1. HUMIRA [Suspect]
     Active Substance: ADALIMUMAB
     Indication: CROHN^S DISEASE
     Route: 058
     Dates: start: 20150501

REACTIONS (5)
  - Paraesthesia oral [Unknown]
  - Mouth swelling [Unknown]
  - Lip swelling [Unknown]
  - Eyelid oedema [Unknown]
  - Rash [Unknown]

NARRATIVE: CASE EVENT DATE: 201505
